FAERS Safety Report 11419164 (Version 1)
Quarter: 2015Q3

REPORT INFORMATION
  Report Type: Spontaneous
  Country: US (occurrence: None)
  Receive Date: 20150820
  Receipt Date: 20150820
  Transmission Date: 20151125
  Serious: No
  Sender: FDA-Public Use
  Company Number: PHEH2015US010887

PATIENT
  Age: 52 Year
  Sex: Female

DRUGS (10)
  1. URSODIOL (URSODEOXYCHOLIC ACID) [Concomitant]
  2. BUSPAR (BUSPIRONE HYDROCHLORIDE) [Concomitant]
  3. TIZANIDINE (TIZANIDINE) [Concomitant]
     Active Substance: TIZANIDINE
  4. FISH OIL (FISH OIL) [Concomitant]
     Active Substance: FISH OIL
  5. COSENTYX [Suspect]
     Active Substance: SECUKINUMAB
     Indication: PRODUCT USED FOR UNKNOWN INDICATION
     Dosage: INJECTION NOS
     Dates: end: 20150602
  6. DEXILANT [Concomitant]
     Active Substance: DEXLANSOPRAZOLE
  7. VIT D (ERGOCALCIFEROL) [Concomitant]
     Active Substance: ERGOCALCIFEROL
  8. REMERON [Concomitant]
     Active Substance: MIRTAZAPINE
  9. NEURONTIN [Concomitant]
     Active Substance: GABAPENTIN
  10. TRAMADOL (TRAMADOL) [Concomitant]
     Active Substance: TRAMADOL

REACTIONS (1)
  - Liver disorder [None]
